FAERS Safety Report 8382466-8 (Version None)
Quarter: 2012Q2

REPORT INFORMATION
  Report Type: 
  Country: None (occurrence: None)
  Receive Date: 20120524
  Receipt Date: 20120519
  Transmission Date: 20120825
  Serious: Yes (Hospitalization, Other)
  Sender: FDA-Public Use
  Company Number: PHEH2011US010365

PATIENT
  Sex: Female

DRUGS (3)
  1. SANDOSTATIN [Suspect]
     Indication: MASS
     Dosage: 50 UG, DAILY
     Route: 058
  2. VERAPAMIL [Concomitant]
  3. NASCOBAL [Concomitant]

REACTIONS (4)
  - VOMITING [None]
  - PAIN [None]
  - INTRACRANIAL PRESSURE INCREASED [None]
  - HEADACHE [None]
